FAERS Safety Report 8016117-9 (Version None)
Quarter: 2011Q4

REPORT INFORMATION
  Report Type: 
  Country: None (occurrence: None)
  Receive Date: 20111230
  Receipt Date: 20111221
  Transmission Date: 20120403
  Serious: Yes (Life-Threatening)
  Sender: FDA-Public Use
  Company Number: JP-ABBOTT-11P-087-0885903-00

PATIENT
  Sex: Female
  Weight: 70 kg

DRUGS (15)
  1. PREDNISOLONE [Concomitant]
     Route: 048
     Dates: start: 20110418, end: 20110807
  2. PREDNISOLONE [Concomitant]
     Route: 048
     Dates: start: 20091127, end: 20110123
  3. KETOPROFEN [Concomitant]
     Indication: RHEUMATOID ARTHRITIS
     Dosage: ADEQUATE DOSE DAILY
     Route: 061
     Dates: start: 20091127
  4. METHOTREXATE [Concomitant]
     Dates: start: 20100329, end: 20110807
  5. AMOBAN [Concomitant]
     Indication: INSOMNIA
     Route: 048
     Dates: start: 20091204
  6. LIVALO [Concomitant]
     Indication: HYPERCHOLESTEROLAEMIA
     Route: 048
     Dates: start: 20100412
  7. HALCION [Concomitant]
     Indication: INSOMNIA
     Route: 048
     Dates: start: 20091204
  8. PREDNISOLONE [Concomitant]
     Indication: RHEUMATOID ARTHRITIS
     Route: 048
     Dates: start: 20110124, end: 20110224
  9. PREDNISOLONE [Concomitant]
     Route: 048
     Dates: start: 20110808, end: 20111204
  10. PREDNISOLONE [Concomitant]
     Route: 048
     Dates: start: 20110128, end: 20110417
  11. MICARDIS [Concomitant]
     Route: 048
     Dates: start: 20101107
  12. FOLIC ACID [Concomitant]
     Indication: PRODUCT USED FOR UNKNOWN INDICATION
     Dates: start: 20091230, end: 20110807
  13. HUMIRA [Suspect]
     Indication: RHEUMATOID ARTHRITIS
     Route: 058
     Dates: start: 20100628, end: 20101214
  14. METHOTREXATE [Concomitant]
     Indication: RHEUMATOID ARTHRITIS
     Dates: start: 20091228, end: 20100328
  15. MICARDIS [Concomitant]
     Indication: HYPERTENSION
     Route: 048
     Dates: start: 20100616, end: 20100817

REACTIONS (1)
  - COLON CANCER [None]
